FAERS Safety Report 7898168-8 (Version None)
Quarter: 2011Q4

REPORT INFORMATION
  Report Type: 
  Country: None (occurrence: None)
  Receive Date: 20111107
  Receipt Date: 20111027
  Transmission Date: 20120403
  Serious: Yes (Other)
  Sender: FDA-Public Use
  Company Number: FR-MERCK-1110USA04420

PATIENT
  Age: 62 Year
  Sex: Female

DRUGS (4)
  1. DECADRON [Suspect]
     Indication: LEUKAEMIA RECURRENT
     Route: 048
  2. VINCRISTINE SULFATE [Concomitant]
     Indication: LEUKAEMIA RECURRENT
     Route: 065
  3. CLOFARABINE [Suspect]
     Indication: LEUKAEMIA RECURRENT
     Route: 065
  4. CYCLOSPORINE [Suspect]
     Indication: PROPHYLAXIS
     Route: 065

REACTIONS (2)
  - SPINAL FRACTURE [None]
  - ACUTE GRAFT VERSUS HOST DISEASE [None]
